FAERS Safety Report 7601643-4 (Version None)
Quarter: 2011Q3

REPORT INFORMATION
  Report Type: 
  Country: None (occurrence: None)
  Receive Date: 20110711
  Receipt Date: 20110706
  Transmission Date: 20111222
  Serious: Yes (Hospitalization)
  Sender: FDA-Public Use
  Company Number: US-BRISTOL-MYERS SQUIBB COMPANY-15880008

PATIENT
  Age: 61 Year
  Sex: Male
  Weight: 79 kg

DRUGS (3)
  1. CISPLATIN [Suspect]
     Indication: OESOPHAGEAL ADENOCARCINOMA
     Dosage: RECENT INFUSION: 11JAN2011
     Dates: start: 20101207
  2. ERBITUX [Suspect]
     Indication: OESOPHAGEAL ADENOCARCINOMA
     Dosage: RECENT INFUSION: 11JAN2011
     Dates: start: 20101207
  3. TAXOL [Suspect]
     Indication: OESOPHAGEAL ADENOCARCINOMA
     Dosage: RECENT INFUSION: 11JAN2011
     Dates: start: 20101207

REACTIONS (7)
  - PANCYTOPENIA [None]
  - WHITE BLOOD CELL COUNT DECREASED [None]
  - NAUSEA [None]
  - ARTERIAL THROMBOSIS LIMB [None]
  - OESOPHAGITIS [None]
  - DYSPHAGIA [None]
  - ATRIAL FIBRILLATION [None]
